FAERS Safety Report 12428557 (Version 2)
Quarter: 2016Q3

REPORT INFORMATION
  Report Type: Spontaneous
  Country: DE (occurrence: DE)
  Receive Date: 20160602
  Receipt Date: 20160706
  Transmission Date: 20161109
  Serious: Yes (Hospitalization)
  Sender: FDA-Public Use
  Company Number: DE-SA-2016SA102844

PATIENT
  Age: 76 Year
  Sex: Male
  Weight: 77 kg

DRUGS (9)
  1. PRALUENT [Suspect]
     Active Substance: ALIROCUMAB
     Indication: HYPERLIPIDAEMIA
     Route: 058
     Dates: start: 20160510, end: 20160510
  2. THYRONAJOD [Concomitant]
     Active Substance: LEVOTHYROXINE SODIUM\POTASSIUM IODIDE
  3. NITRENDIPINE [Concomitant]
     Active Substance: NITRENDIPINE
  4. VALSARTAN. [Concomitant]
     Active Substance: VALSARTAN
  5. TORASEMID [Concomitant]
     Active Substance: TORSEMIDE
  6. PHENPROCOUMON [Concomitant]
     Active Substance: PHENPROCOUMON
  7. ALIROCUMAB PREFILLED PEN [Concomitant]
     Active Substance: ALIROCUMAB
     Indication: HYPERLIPIDAEMIA
     Dates: start: 20160510, end: 20160510
  8. BISOPROLOL [Concomitant]
     Active Substance: BISOPROLOL
  9. VIGANTOLETTEN [Concomitant]
     Active Substance: CHOLECALCIFEROL

REACTIONS (4)
  - White blood cell count increased [Recovering/Resolving]
  - Inflammation [Recovering/Resolving]
  - C-reactive protein increased [Recovering/Resolving]
  - Atrial fibrillation [Recovering/Resolving]

NARRATIVE: CASE EVENT DATE: 20160520
